FAERS Safety Report 8927726 (Version 1)
Quarter: 2012Q4

REPORT INFORMATION
  Report Type: 
  Country: US (occurrence: US)
  Receive Date: 20121127
  Receipt Date: 20121127
  Transmission Date: 20130627
  Serious: Yes (Hospitalization)
  Sender: FDA-Public Use
  Company Number: PHEH2012US023158

PATIENT
  Sex: Male

DRUGS (2)
  1. FANAPT [Suspect]
     Dosage: 8 mg, BID
  2. INVEGA SUSTENNA [Concomitant]

REACTIONS (1)
  - Loss of consciousness [Recovered/Resolved]
